FAERS Safety Report 12316978 (Version 2)
Quarter: 2016Q3

REPORT INFORMATION
  Report Type: Spontaneous
  Country: US (occurrence: US)
  Receive Date: 20160429
  Receipt Date: 20160721
  Transmission Date: 20161109
  Serious: Yes (Disabling, Other)
  Sender: FDA-Public Use
  Company Number: PHEH2016US010130

PATIENT
  Age: 32 Year
  Sex: Female
  Weight: 68.48 kg

DRUGS (13)
  1. COSENTYX [Suspect]
     Active Substance: SECUKINUMAB
     Indication: PSORIASIS
     Dosage: 300 MG, QMO
     Route: 058
     Dates: start: 20150505, end: 20160608
  2. COSENTYX [Suspect]
     Active Substance: SECUKINUMAB
     Indication: PSORIATIC ARTHROPATHY
  3. FLUCONAZOLE. [Concomitant]
     Active Substance: FLUCONAZOLE
     Indication: PRODUCT USED FOR UNKNOWN INDICATION
     Dosage: 1 DF, QMO
     Route: 048
  4. XANAX [Concomitant]
     Active Substance: ALPRAZOLAM
     Indication: ANXIETY
     Dosage: 1 MG, UNK
     Route: 048
     Dates: start: 20150209
  5. DIFLUCAN [Concomitant]
     Active Substance: FLUCONAZOLE
     Indication: CANDIDA INFECTION
     Dosage: 1 DF, QD FOR 21 DAYS
     Route: 065
     Dates: start: 20160404
  6. MUPIROCIN. [Concomitant]
     Active Substance: MUPIROCIN
     Indication: PRODUCT USED FOR UNKNOWN INDICATION
     Dosage: 2 %, TID
     Route: 045
     Dates: start: 20160209
  7. IRON [Concomitant]
     Active Substance: IRON
     Indication: IRON DEFICIENCY
     Dosage: 1 DF, QD
     Route: 048
     Dates: start: 20140811
  8. SULFASALAZINE. [Concomitant]
     Active Substance: SULFASALAZINE
     Dosage: 2 DF, BID
     Route: 065
  9. CLOTRIMAZOLE. [Concomitant]
     Active Substance: CLOTRIMAZOLE
     Indication: PRODUCT USED FOR UNKNOWN INDICATION
     Dosage: 2 DF, TID
     Route: 048
     Dates: start: 20160324
  10. SULFASALAZINE. [Concomitant]
     Active Substance: SULFASALAZINE
     Indication: PRODUCT USED FOR UNKNOWN INDICATION
     Dosage: 1 DF, BID FOR 1 WEEK
     Route: 065
     Dates: start: 20160518
  11. MELOXICAM. [Concomitant]
     Active Substance: MELOXICAM
     Indication: ARTHRALGIA
     Dosage: 7.5 MG, BID
     Route: 048
     Dates: start: 20140703
  12. DOXYCYCLINE. [Concomitant]
     Active Substance: DOXYCYCLINE
     Dosage: 1 DF, QD WITH FOOD AND WATER
     Route: 065
     Dates: start: 20160324
  13. DIFLUCAN [Concomitant]
     Active Substance: FLUCONAZOLE
     Dosage: 2 DF, QD FOR 14 DAYS
     Route: 065
     Dates: start: 20160426

REACTIONS (8)
  - Nasal discomfort [Unknown]
  - Staphylococcal infection [Unknown]
  - Mouth ulceration [Recovering/Resolving]
  - Vulvovaginal candidiasis [Not Recovered/Not Resolved]
  - Fatigue [Recovering/Resolving]
  - Crying [Recovering/Resolving]
  - Oral candidiasis [Not Recovered/Not Resolved]
  - Vaginal ulceration [Not Recovered/Not Resolved]

NARRATIVE: CASE EVENT DATE: 20160318
